FAERS Safety Report 24286229 (Version 5)
Quarter: 2024Q4

REPORT INFORMATION
  Report Type: Spontaneous
  Country: IN (occurrence: IN)
  Receive Date: 20240905
  Receipt Date: 20241011
  Transmission Date: 20250115
  Serious: Yes (Life-Threatening, Hospitalization, Other)
  Sender: PFIZER
  Company Number: IN-PFIZER INC-PV202400115925

PATIENT
  Age: 52 Year
  Sex: Male

DRUGS (1)
  1. LORLATINIB [Suspect]
     Active Substance: LORLATINIB
     Dosage: 100 MG, 1X/DAY
     Route: 048
     Dates: start: 20240810

REACTIONS (6)
  - Urinary tract infection [Unknown]
  - Cerebral haemorrhage [Recovered/Resolved]
  - Loss of consciousness [Unknown]
  - Seizure [Unknown]
  - Musculoskeletal stiffness [Unknown]
  - Incorrect route of product administration [Unknown]

NARRATIVE: CASE EVENT DATE: 20240810
